FAERS Safety Report 7353500-9 (Version None)
Quarter: 2011Q1

REPORT INFORMATION
  Report Type: 
  Country: None (occurrence: None)
  Receive Date: 20110315
  Receipt Date: 20110308
  Transmission Date: 20110831
  Serious: Yes (Hospitalization)
  Sender: FDA-Public Use
  Company Number: SE-PURDUE-GBR-2011-0007874

PATIENT
  Sex: Female

DRUGS (15)
  1. ACETAMINOPHEN [Concomitant]
  2. FURIX [Concomitant]
  3. SPIRONOLAKTON [Concomitant]
  4. SERTRALIN                          /01011401/ [Concomitant]
  5. IMPUGAN [Concomitant]
  6. NOVONORM [Concomitant]
  7. LANTUS [Concomitant]
  8. TAVEGYL [Concomitant]
  9. BRICANYL [Concomitant]
  10. OXASCAND [Concomitant]
  11. OMEPRAZOL                          /00661201/ [Concomitant]
  12. ZOPLICONE [Concomitant]
  13. OXYCONTIN [Suspect]
     Indication: PAIN
     Dosage: UNK
     Route: 048
     Dates: start: 20100901, end: 20101101
  14. KALEORID [Concomitant]
  15. TROMBYL [Concomitant]

REACTIONS (3)
  - NAUSEA [None]
  - VOMITING [None]
  - RENAL FAILURE ACUTE [None]
